FAERS Safety Report 7301704-3 (Version None)
Quarter: 2011Q1

REPORT INFORMATION
  Report Type: 
  Country: None (occurrence: None)
  Receive Date: 20110218
  Receipt Date: 20110207
  Transmission Date: 20110831
  Serious: Yes (Hospitalization)
  Sender: FDA-Public Use
  Company Number: DE-SANOFI-AVENTIS-F01200801160

PATIENT
  Age: 68 Year
  Sex: Male

DRUGS (6)
  1. TAMSULOSIN HCL [Concomitant]
     Indication: BENIGN PROSTATIC HYPERPLASIA
     Route: 048
     Dates: start: 20060926
  2. BICALUTAMIDE [Suspect]
     Route: 048
     Dates: start: 20071022, end: 20071120
  3. BICALUTAMIDE [Suspect]
     Route: 048
     Dates: start: 20060727, end: 20060822
  4. DILTIAZEM HYDROCHLORIDE [Concomitant]
     Indication: HYPERTENSION
     Route: 048
     Dates: start: 20021001
  5. ALLOPURINOL [Concomitant]
     Route: 048
     Dates: start: 20020401
  6. LEUPROLIDE ACETATE [Suspect]
     Indication: PROSTATE CANCER
     Route: 058
     Dates: start: 20060727, end: 20080808

REACTIONS (3)
  - RENAL FAILURE [None]
  - URINARY TRACT OBSTRUCTION [None]
  - LYMPHOEDEMA [None]
